FAERS Safety Report 18521741 (Version 1)
Quarter: 2020Q4

REPORT INFORMATION
  Report Type: Spontaneous
  Country: US (occurrence: US)
  Receive Date: 20201118
  Receipt Date: 20201118
  Transmission Date: 20210114
  Serious: Yes (Hospitalization)
  Sender: FDA-Public Use
  Company Number: None

PATIENT
  Age: 57 Year
  Sex: Female

DRUGS (1)
  1. AMBRISENTAN 10MG TABLETS 30/BO: 10MG [Suspect]
     Active Substance: AMBRISENTAN
     Indication: PULMONARY HYPERTENSION
     Route: 048
     Dates: start: 20130725

REACTIONS (5)
  - Pulmonary hypertension [None]
  - Oxygen saturation decreased [None]
  - Malignant neoplasm progression [None]
  - Dyspnoea [None]
  - Epistaxis [None]

NARRATIVE: CASE EVENT DATE: 20201030
